FAERS Safety Report 5666759-0 (Version None)
Quarter: 2008Q1

REPORT INFORMATION
  Report Type: 
  Country: None (occurrence: None)
  Receive Date: 20080315
  Receipt Date: 20071226
  Transmission Date: 20080703
  Serious: No
  Sender: FDA-Public Use
  Company Number: US-ABBOTT-08P-163-0431734-00

PATIENT
  Sex: Male
  Weight: 59.02 kg

DRUGS (6)
  1. HUMIRA [Suspect]
     Indication: CROHN'S DISEASE
     Route: 058
     Dates: start: 20070701
  2. HUMIRA [Suspect]
     Route: 058
  3. HUMIRA [Suspect]
     Route: 058
  4. METHOTREXATE [Concomitant]
     Indication: CROHN'S DISEASE
  5. BUDESONIDE [Concomitant]
     Indication: CROHN'S DISEASE
  6. PENTASA [Concomitant]
     Indication: CROHN'S DISEASE

REACTIONS (3)
  - ERYTHEMA [None]
  - PRURITUS [None]
  - SKIN NODULE [None]
